FAERS Safety Report 25008775 (Version 4)
Quarter: 2025Q2

REPORT INFORMATION
  Report Type: Spontaneous
  Country: BE (occurrence: BE)
  Receive Date: 20250225
  Receipt Date: 20250403
  Transmission Date: 20250717
  Serious: Yes (Hospitalization, Other)
  Sender: SANDOZ
  Company Number: BE-FreseniusKabi-FK202502317

PATIENT
  Age: 68 Year
  Sex: Female

DRUGS (3)
  1. ADALIMUMAB [Suspect]
     Active Substance: ADALIMUMAB
     Indication: Rheumatoid arthritis
     Route: 065
  2. METHOTREXATE [Suspect]
     Active Substance: METHOTREXATE
     Indication: Product used for unknown indication
     Route: 065
  3. CIPROFLOXACIN [Concomitant]
     Active Substance: CIPROFLOXACIN
     Indication: Pseudomonas infection
     Route: 065

REACTIONS (9)
  - Sarcoidosis [Recovered/Resolved]
  - Neutropenia [Recovered/Resolved]
  - Spleen disorder [Recovered/Resolved]
  - Hypermetabolism [Recovered/Resolved]
  - Drug intolerance [Unknown]
  - Hilar lymphadenopathy [Recovered/Resolved]
  - Lymphadenopathy mediastinal [Recovered/Resolved]
  - Granulomatous lymphadenitis [Recovered/Resolved]
  - Pseudomonas infection [Unknown]
